FAERS Safety Report 9143780 (Version 3)
Quarter: 2013Q3

REPORT INFORMATION
  Report Type: Report from Study
  Country: US (occurrence: US)
  Receive Date: 20130306
  Receipt Date: 20130724
  Transmission Date: 20140515
  Serious: Yes (Hospitalization, Other)
  Sender: FDA-Public Use
  Company Number: US-BRISTOL-MYERS SQUIBB COMPANY-17418963

PATIENT
  Age: 51 Year
  Sex: Male

DRUGS (28)
  1. SAXAGLIPTIN [Suspect]
     Indication: TYPE 2 DIABETES MELLITUS
     Dosage: STOPPED ON 11JUL2011 AND RESUMED ON 10AUG2011?LAST DOSE ON 29MAR12
     Dates: start: 20110302
  2. INSULIN LISPRO [Suspect]
     Indication: TYPE 2 DIABETES MELLITUS
     Dosage: 6S-9N12:15IU/U;?9N-CONT:12IU/U
     Dates: start: 20120906
  3. INSULIN NPH [Suspect]
     Indication: TYPE 2 DIABETES MELLITUS
     Dosage: 6S-1O;36IU/U,1O-12N;16IU/U,13N-3D;6IU,4D2012-CONT:3IU/U
     Dates: start: 20120906
  4. ASPIRIN [Concomitant]
  5. FLUCONAZOLE [Concomitant]
     Indication: ONYCHOMYCOSIS
     Route: 048
     Dates: start: 20120910
  6. EPLERENONE [Concomitant]
     Indication: CARDIAC FAILURE CONGESTIVE
     Route: 048
     Dates: start: 20120809, end: 20121113
  7. POTASSIUM CHLORIDE [Concomitant]
     Indication: CARDIAC FAILURE CONGESTIVE
     Route: 048
     Dates: start: 20120829
  8. POTASSIUM CHLORIDE [Concomitant]
     Indication: ELECTROLYTE SUBSTITUTION THERAPY
     Route: 048
     Dates: start: 20120829
  9. MYCOPHENOLATE SODIUM [Concomitant]
     Indication: CARDIAC FAILURE CONGESTIVE
     Route: 048
     Dates: start: 20120903
  10. PRAVASTATIN SODIUM [Concomitant]
     Indication: CARDIAC FAILURE CONGESTIVE
     Route: 048
     Dates: start: 20120906
  11. PREDNISONE [Concomitant]
     Indication: CARDIAC FAILURE CONGESTIVE
     Dosage: 6S-17S:60MG,18S-30S:40MG,1O-13N12:30MG
     Route: 048
     Dates: start: 20120906
  12. FUROSEMIDE [Concomitant]
     Indication: CARDIAC FAILURE CONGESTIVE
     Dosage: 6S-6S;04O-13S:80MG
     Route: 048
     Dates: start: 20120906
  13. TACROLIMUS [Concomitant]
     Indication: CARDIAC FAILURE CONGESTIVE
     Route: 048
     Dates: start: 20120918
  14. HYDRALAZINE [Concomitant]
     Indication: CARDIAC FAILURE CONGESTIVE
     Route: 048
     Dates: start: 20121109
  15. TORSEMIDE [Concomitant]
     Indication: CARDIAC FAILURE CONGESTIVE
     Dosage: 9AUG-17SP:80MG?18SP-9NV12:40MG
     Route: 048
     Dates: start: 20120809
  16. PERCOCET [Concomitant]
     Indication: NEURALGIA
     Route: 048
  17. LEXAPRO [Concomitant]
     Indication: DEPRESSION
     Route: 048
  18. TRAZODONE HCL [Concomitant]
     Indication: DEPRESSION
     Route: 048
  19. ZANTAC [Concomitant]
     Indication: INTESTINAL ULCER
     Route: 048
  20. SUCRALFATE [Concomitant]
     Indication: INTESTINAL ULCER
     Route: 048
  21. PROTONIX [Concomitant]
     Indication: GASTROOESOPHAGEAL REFLUX DISEASE
     Route: 048
  22. PROTONIX [Concomitant]
     Indication: GASTRITIS
     Route: 048
  23. CELEXA [Concomitant]
     Indication: DEPRESSION
     Route: 048
  24. LEVOTHYROXINE [Concomitant]
     Indication: HYPOTHYROIDISM
     Route: 048
  25. MORPHINE [Concomitant]
     Indication: NEURALGIA
     Route: 048
  26. ARICEPT [Concomitant]
     Indication: AMNESIA
     Route: 048
  27. GABAPENTIN [Concomitant]
     Indication: NEUROPATHY PERIPHERAL
     Route: 048
  28. ELOCON [Concomitant]
     Indication: RASH
     Route: 061

REACTIONS (4)
  - Pneumonia [Recovered/Resolved]
  - Fluid retention [Recovered/Resolved]
  - Gastroenteritis [Recovered/Resolved]
  - Cytomegalovirus infection [Not Recovered/Not Resolved]
